FAERS Safety Report 5166785-4 (Version None)
Quarter: 2006Q4

REPORT INFORMATION
  Report Type: 
  Country: None (occurrence: None)
  Receive Date: 20061129
  Receipt Date: 20061115
  Transmission Date: 20070319
  Serious: Yes (Congenital Anomaly)
  Sender: FDA-Public Use
  Company Number: 2006-150662-NL

PATIENT

DRUGS (1)
  1. NUVARING [Suspect]
     Dosage: TRANSPLACENTAL

REACTIONS (5)
  - ABORTION INDUCED [None]
  - DANDY-WALKER SYNDROME [None]
  - DRUG EXPOSURE DURING PREGNANCY [None]
  - PREGNANCY WITH CONTRACEPTIVE DEVICE [None]
  - TRISOMY 21 [None]
